FAERS Safety Report 7351063-5 (Version None)
Quarter: 2011Q1

REPORT INFORMATION
  Report Type: 
  Country: None (occurrence: None)
  Receive Date: 20110314
  Receipt Date: 20110210
  Transmission Date: 20110831
  Serious: Yes (Hospitalization, Other)
  Sender: FDA-Public Use
  Company Number: US-BAYER-201038052NA

PATIENT
  Sex: Female

DRUGS (12)
  1. CARVEDILOL [Concomitant]
     Dosage: 25 MG, BID
  2. CELEXA [Concomitant]
     Dosage: UNK UNK, QD
  3. ALBUTEROL [Concomitant]
  4. ZOCOR [Concomitant]
     Dosage: 20 MG, QD
  5. CLARITIN [Concomitant]
     Dosage: 10 MG, QD
  6. ZYRTEC [Concomitant]
  7. PLAVIX [Concomitant]
     Dosage: 75 MG, QD
  8. YASMIN [Suspect]
     Indication: ACNE
  9. AMLODIPINE [Concomitant]
     Dosage: 10 MG, QD
  10. YAZ [Suspect]
     Indication: ACNE
  11. OCELLA [Suspect]
     Indication: ACNE
  12. ALTACE [Concomitant]
     Dosage: 10 MG, QD

REACTIONS (8)
  - INJURY [None]
  - ACUTE MYOCARDIAL INFARCTION [None]
  - HYPERHIDROSIS [None]
  - CHEST PAIN [None]
  - DYSPNOEA [None]
  - HYPERTENSION [None]
  - PAIN IN EXTREMITY [None]
  - CORONARY ARTERY DISSECTION [None]
